FAERS Safety Report 25645839 (Version 1)
Quarter: 2025Q3

REPORT INFORMATION
  Report Type: Spontaneous
  Country: US (occurrence: US)
  Receive Date: 20250805
  Receipt Date: 20250805
  Transmission Date: 20251021
  Serious: Yes (Other)
  Sender: NOVARTIS
  Company Number: US-002147023-NVSC2025US121501

PATIENT
  Age: 34 Year
  Sex: Female

DRUGS (1)
  1. KISQALI [Suspect]
     Active Substance: RIBOCICLIB SUCCINATE
     Indication: Breast cancer metastatic
     Route: 065

REACTIONS (4)
  - Immunodeficiency [Unknown]
  - Fatigue [Unknown]
  - Hot flush [Unknown]
  - Illness [Unknown]

NARRATIVE: CASE EVENT DATE: 20250701
